FAERS Safety Report 14665239 (Version 1)
Quarter: 2018Q1

REPORT INFORMATION
  Report Type: Spontaneous
  Country: US (occurrence: US)
  Receive Date: 20180321
  Receipt Date: 20180321
  Transmission Date: 20180509
  Serious: Yes (Hospitalization)
  Sender: FDA-Public Use
  Company Number: PHHY2018US040494

PATIENT
  Age: 54 Year
  Sex: Male

DRUGS (3)
  1. PREDNISONE. [Suspect]
     Active Substance: PREDNISONE
     Indication: DRUG ERUPTION
     Dosage: 40 MG, QD
     Route: 065
  2. DIPHENHYDRAMINE. [Suspect]
     Active Substance: DIPHENHYDRAMINE
     Indication: DRUG ERUPTION
     Dosage: UNK UNK, PRN
     Route: 048
  3. HYDROCORTISONE. [Suspect]
     Active Substance: HYDROCORTISONE
     Indication: DRUG ERUPTION
     Dosage: 1 %, PRN
     Route: 061

REACTIONS (3)
  - Treatment failure [Unknown]
  - Rash [Recovering/Resolving]
  - Pruritus [Recovering/Resolving]
